FAERS Safety Report 11719574 (Version 1)
Quarter: 2015Q4

REPORT INFORMATION
  Report Type: Spontaneous
  Country: US (occurrence: None)
  Receive Date: 20151109
  Receipt Date: 20151109
  Transmission Date: 20160304
  Serious: No
  Sender: FDA-Public Use
  Company Number: None

PATIENT
  Age: 55 Year
  Sex: Female
  Weight: 56.7 kg

DRUGS (16)
  1. LEVAQUIN [Suspect]
     Active Substance: LEVOFLOXACIN
     Indication: SINUSITIS
     Dosage: TAKEN BY MOUTH
     Dates: start: 20131231, end: 20140114
  2. AVELOX [Suspect]
     Active Substance: MOXIFLOXACIN HYDROCHLORIDE
     Indication: SINUSITIS
     Dates: start: 20130116, end: 20130130
  3. AVELOX [Suspect]
     Active Substance: MOXIFLOXACIN HYDROCHLORIDE
     Indication: BRONCHITIS
     Dates: start: 20130116, end: 20130130
  4. AVELOX [Suspect]
     Active Substance: MOXIFLOXACIN HYDROCHLORIDE
     Indication: NASAL POLYPS
     Dates: start: 20130116, end: 20130130
  5. VITAMIN D3 [Concomitant]
     Active Substance: CHOLECALCIFEROL
  6. ASACHOL [Concomitant]
  7. LEVAQUIN [Suspect]
     Active Substance: LEVOFLOXACIN
     Indication: BRONCHITIS
     Dosage: TAKEN BY MOUTH
     Dates: start: 20131231, end: 20140114
  8. MULTIVITAMIN [Concomitant]
     Active Substance: VITAMINS
  9. MAGNESIUM GLUCONATE [Concomitant]
     Active Substance: MAGNESIUM GLUCONATE
  10. VITAMIN K2 [Concomitant]
     Active Substance: MENAQUINONE 6
  11. CALCIUM CARBONATE. [Concomitant]
     Active Substance: CALCIUM CARBONATE
  12. ZINC GLUCONATE [Concomitant]
     Active Substance: ZINC GLUCONATE
  13. SINGULAIR [Concomitant]
     Active Substance: MONTELUKAST SODIUM
  14. ZYRTEC [Concomitant]
     Active Substance: CETIRIZINE HYDROCHLORIDE
  15. VITAMIN D3 [Concomitant]
     Active Substance: CHOLECALCIFEROL
  16. POTASSIUM [Concomitant]
     Active Substance: POTASSIUM

REACTIONS (10)
  - Viral infection [None]
  - Crohn^s disease [None]
  - Tendon pain [None]
  - Malaise [None]
  - Tinnitus [None]
  - Myalgia [None]
  - Inflammatory bowel disease [None]
  - Food intolerance [None]
  - Arthritis [None]
  - Pyrexia [None]

NARRATIVE: CASE EVENT DATE: 20131231
